FAERS Safety Report 19582995 (Version 1)
Quarter: 2021Q3

REPORT INFORMATION
  Report Type: Spontaneous
  Country: US (occurrence: US)
  Receive Date: 20210720
  Receipt Date: 20210720
  Transmission Date: 20211014
  Serious: Yes (Death)
  Sender: FDA-Public Use
  Company Number: None

PATIENT
  Age: 74 Year
  Sex: Male

DRUGS (3)
  1. PREVYMIS [Suspect]
     Active Substance: LETERMOVIR
     Indication: ACUTE MYELOID LEUKAEMIA
     Route: 048
     Dates: start: 20210213, end: 20210421
  2. N/A [Concomitant]
     Active Substance: UNSPECIFIED INGREDIENT
  3. PREVYMIS [Suspect]
     Active Substance: LETERMOVIR
     Indication: HODGKIN^S DISEASE
     Route: 048
     Dates: start: 20210213, end: 20210421

REACTIONS (1)
  - Death [None]

NARRATIVE: CASE EVENT DATE: 20210421
